FAERS Safety Report 19668351 (Version 1)
Quarter: 2021Q3

REPORT INFORMATION
  Report Type: Spontaneous
  Country: US (occurrence: US)
  Receive Date: 20210806
  Receipt Date: 20210806
  Transmission Date: 20211014
  Serious: Yes (Disabling, Other)
  Sender: FDA-Public Use
  Company Number: US-PURDUE-USA-2020-0211066

PATIENT
  Sex: Male

DRUGS (10)
  1. OXYCODONE/ ACETAMINOPHEN TABLETS [Suspect]
     Active Substance: ACETAMINOPHEN\OXYCODONE HYDROCHLORIDE
     Indication: KNEE OPERATION
     Dosage: UNKNOWN
     Route: 048
     Dates: start: 2003
  2. HYDROCODONE BITARTRATE AND ACETAMINOPHEN [Suspect]
     Active Substance: ACETAMINOPHEN\HYDROCODONE BITARTRATE
     Indication: KNEE OPERATION
     Dosage: UNKNOWN
     Route: 048
     Dates: start: 2003
  3. OXYCODONE HCL CR TABLETS (SIMILAR TO NDA 22?272) [Suspect]
     Active Substance: OXYCODONE HYDROCHLORIDE
     Indication: KNEE OPERATION
     Dosage: UNKNOWN
     Route: 048
     Dates: start: 2003
  4. OXYCODONE HCL TABLETS (RHODES 91?490) [Suspect]
     Active Substance: OXYCODONE HYDROCHLORIDE
     Indication: KNEE OPERATION
     Dosage: UNKNOWN
     Route: 048
     Dates: start: 2003
  5. TRAMADOL CR TABLETS (RHODES 21?745) [Suspect]
     Active Substance: TRAMADOL
     Indication: KNEE OPERATION
     Dosage: UNKNOWN
     Route: 048
     Dates: start: 2003
  6. OXYFAST [Suspect]
     Active Substance: OXYCODONE
     Indication: KNEE OPERATION
     Dosage: UNKNOWN
     Route: 048
     Dates: start: 2003
  7. OXYCONTIN [Suspect]
     Active Substance: OXYCODONE HYDROCHLORIDE
     Indication: KNEE OPERATION
     Dosage: UNKNOWN
     Route: 048
     Dates: start: 2003
  8. MS IR [Suspect]
     Active Substance: MORPHINE SULFATE
     Indication: KNEE OPERATION
     Dosage: UNKNOWN
     Route: 048
     Dates: start: 2003
  9. VICODIN [Suspect]
     Active Substance: ACETAMINOPHEN\HYDROCODONE BITARTRATE
     Indication: PRODUCT USED FOR UNKNOWN INDICATION
     Dosage: 500 MG, UNK
     Route: 065
  10. VICODIN [Suspect]
     Active Substance: ACETAMINOPHEN\HYDROCODONE BITARTRATE
     Dosage: 10?375MG, UNK
     Route: 065

REACTIONS (4)
  - Depression [Unknown]
  - Emotional distress [Unknown]
  - Disability [Unknown]
  - Drug dependence [Unknown]
